FAERS Safety Report 6441821-3 (Version None)
Quarter: 2009Q4

REPORT INFORMATION
  Report Type: 
  Country: None (occurrence: None)
  Receive Date: 20091113
  Receipt Date: 20091113
  Transmission Date: 20100525
  Serious: Yes (Other)
  Sender: FDA-Public Use
  Company Number: None

PATIENT
  Age: 49 Year
  Sex: Female
  Weight: 88.4514 kg

DRUGS (1)
  1. ATENOLOL [Suspect]
     Indication: HEART RATE IRREGULAR
     Dosage: 25 MG 1 DAILY PO
     Route: 048
     Dates: start: 20091028, end: 20091104

REACTIONS (5)
  - CARDIAC FLUTTER [None]
  - CHEST DISCOMFORT [None]
  - PALPITATIONS [None]
  - PRODUCT QUALITY ISSUE [None]
  - PRODUCT SUBSTITUTION ISSUE [None]
